FAERS Safety Report 6648210-7 (Version None)
Quarter: 2010Q1

REPORT INFORMATION
  Report Type: 
  Country: None (occurrence: None)
  Receive Date: 20100324
  Receipt Date: 20100317
  Transmission Date: 20100710
  Serious: Yes (Death, Life-Threatening, Hospitalization)
  Sender: FDA-Public Use
  Company Number: JP-BAYER-200912695BYL

PATIENT
  Age: 69 Year
  Sex: Male
  Weight: 71 kg

DRUGS (19)
  1. NEXAVAR [Suspect]
     Indication: HEPATIC NEOPLASM MALIGNANT
     Dosage: TOTAL DAILY DOSE: 800 MG  UNIT DOSE: 200 MG
     Route: 048
     Dates: start: 20090609, end: 20090727
  2. NEXAVAR [Suspect]
     Dosage: TOTAL DAILY DOSE: 400 MG  UNIT DOSE: 200 MG
     Route: 048
     Dates: start: 20090728, end: 20090803
  3. LASIX [Concomitant]
     Dosage: BEFORE NEXAVAR ADMINISTRATION
     Route: 048
  4. ALDACTONE [Concomitant]
     Dosage: BEFORE NEXAVAR ADMINISTRATION
     Route: 048
  5. DIOVAN [Concomitant]
     Dosage: BEFORE NEXAVAR ADMINISTRATION
     Route: 048
  6. ADALAT [Concomitant]
     Dosage: BEFORE NEXAVAR ADMINISTRATION
     Route: 048
  7. NEOPHAGEN C [Concomitant]
     Dosage: BEFORE NEXAVAR ADMINISTRATION
     Route: 048
  8. MELBIN [Concomitant]
     Dosage: BEFORE NEXAVAR ADMINISTRATION
     Route: 048
  9. DAONIL [Concomitant]
     Dosage: BEFORE NEXAVAR ADMINISTRATION
     Route: 048
  10. FLUITRAN [Concomitant]
     Dosage: BEFORE NEXAVAR ADMINISTRATION
     Route: 048
  11. FAMOTIDINE [Concomitant]
     Route: 048
     Dates: start: 20090611, end: 20090615
  12. LOXONIN [Concomitant]
     Dosage: BEFORE NEXAVAR ADMINISTRATION
     Route: 048
     Dates: end: 20090615
  13. PARIET [Concomitant]
     Route: 048
     Dates: start: 20090616
  14. CALONAL [Concomitant]
     Route: 048
     Dates: start: 20090616
  15. MAGMITT [Concomitant]
     Route: 048
     Dates: start: 20090615
  16. CEFAPICOL [Concomitant]
     Route: 042
     Dates: start: 20090610, end: 20090615
  17. HUMULIN R [Concomitant]
     Dosage: 8-14U,BEFORE NEXAVAR ADMINISTRATION
     Route: 058
     Dates: end: 20090711
  18. SOLACET D [Concomitant]
     Route: 042
     Dates: start: 20090615, end: 20090622
  19. SOLDEM 3A [Concomitant]
     Route: 042
     Dates: start: 20090615, end: 20090706

REACTIONS (6)
  - ALTERED STATE OF CONSCIOUSNESS [None]
  - DEATH [None]
  - INCONTINENCE [None]
  - PYREXIA [None]
  - RASH [None]
  - SINUS BRADYCARDIA [None]
